FAERS Safety Report 17707216 (Version 1)
Quarter: 2020Q2

REPORT INFORMATION
  Report Type: Spontaneous
  Country: FR (occurrence: FR)
  Receive Date: 20200424
  Receipt Date: 20200424
  Transmission Date: 20200714
  Serious: Yes (Other)
  Sender: FDA-Public Use
  Company Number: NVSC2020FR110906

PATIENT
  Age: 29 Year
  Sex: Female
  Weight: 40 kg

DRUGS (5)
  1. MICROPAKINE [Concomitant]
     Active Substance: VALPROATE SODIUM
     Indication: EPILEPSY
     Dosage: UNK
     Route: 065
  2. DIPIPERON [Concomitant]
     Active Substance: PIPAMPERONE
     Indication: PRODUCT USED FOR UNKNOWN INDICATION
     Dosage: UNK
     Route: 065
  3. GLYCERIN\MINERAL OIL\PETROLEUM [Suspect]
     Active Substance: GLYCERIN\LIQUID PETROLEUM\MINERAL OIL
     Indication: DRY SKIN
     Dosage: UNK (1 APPLICATION DAILY IN THE ENTIRE BODY, 15/20G)
     Route: 003
     Dates: start: 20190504, end: 20190505
  4. KEPPRA [Concomitant]
     Active Substance: LEVETIRACETAM
     Indication: EPILEPSY
     Dosage: UNK
     Route: 016
  5. SERESTA [Concomitant]
     Active Substance: OXAZEPAM
     Indication: PRODUCT USED FOR UNKNOWN INDICATION
     Dosage: UNK
     Route: 065
     Dates: start: 20190529

REACTIONS (8)
  - Food refusal [Not Recovered/Not Resolved]
  - High-pitched crying [Not Recovered/Not Resolved]
  - Agitation [Not Recovered/Not Resolved]
  - Pain [Unknown]
  - Anxiety [Not Recovered/Not Resolved]
  - Sleep disorder [Not Recovered/Not Resolved]
  - Burns second degree [Recovered/Resolved with Sequelae]
  - Crying [Not Recovered/Not Resolved]

NARRATIVE: CASE EVENT DATE: 20190506
